FAERS Safety Report 13812313 (Version 4)
Quarter: 2018Q1

REPORT INFORMATION
  Report Type: Report from Study
  Country: US (occurrence: US)
  Receive Date: 20170728
  Receipt Date: 20180125
  Transmission Date: 20180508
  Serious: No
  Sender: FDA-Public Use
  Company Number: US-AMGEN-USASL2017101577

PATIENT
  Age: 72 Year
  Sex: Female

DRUGS (2)
  1. REPATHA [Suspect]
     Active Substance: EVOLOCUMAB
     Dosage: 140 MG, Q2WK
     Route: 065
  2. REPATHA [Suspect]
     Active Substance: EVOLOCUMAB
     Indication: HYPERCHOLESTEROLAEMIA
     Dosage: 140 MG, Q2MO
     Route: 065
     Dates: start: 201610

REACTIONS (8)
  - Grip strength decreased [Unknown]
  - Fall [Unknown]
  - Underdose [Unknown]
  - Off label use [Unknown]
  - Drug dose omission [Unknown]
  - Arthritis [Unknown]
  - Accidental exposure to product [Unknown]
  - Limb injury [Unknown]

NARRATIVE: CASE EVENT DATE: 201611
